FAERS Safety Report 15705034 (Version 4)
Quarter: 2019Q3

REPORT INFORMATION
  Report Type: Spontaneous
  Country: US (occurrence: US)
  Receive Date: 20181210
  Receipt Date: 20190717
  Transmission Date: 20191004
  Serious: No
  Sender: FDA-Public Use
  Company Number: US-SA-2018SA334441

PATIENT
  Age: 46 Year
  Sex: Female

DRUGS (1)
  1. DUPIXENT [Suspect]
     Active Substance: DUPILUMAB
     Dosage: UNK
     Route: 058
     Dates: start: 20181030

REACTIONS (4)
  - Pruritus [Unknown]
  - Product dose omission [Unknown]
  - Product storage error [Unknown]
  - Lichenoid keratosis [Unknown]

NARRATIVE: CASE EVENT DATE: 20181113
